FAERS Safety Report 5052085-X (Version None)
Quarter: 2006Q3

REPORT INFORMATION
  Report Type: 
  Country: None (occurrence: None)
  Receive Date: 20060711
  Receipt Date: 20060619
  Transmission Date: 20061208
  Serious: Yes (Hospitalization)
  Sender: FDA-Public Use
  Company Number: BE200606004528

PATIENT
  Age: 76 Year
  Sex: Female

DRUGS (4)
  1. FORTEO [Suspect]
     Indication: OSTEOPOROSIS
     Dosage: 20 UG, DAILY (1/D), SUBCUTANEOUS
     Route: 058
  2. FORTEO PEN (FORTEO PEN) [Concomitant]
  3. CALCIUM (CALCIUM) [Concomitant]
  4. LONARID (AMOBARBITAL, CAFFEINE, CODEINE PHOSPHATE, OCTIBENZONIUM BROMI [Concomitant]

REACTIONS (4)
  - COMA [None]
  - FALL [None]
  - HEAD INJURY [None]
  - SUBDURAL HAEMATOMA [None]
